FAERS Safety Report 5832363-4 (Version None)
Quarter: 2008Q3

REPORT INFORMATION
  Report Type: 
  Country: None (occurrence: None)
  Receive Date: 20080804
  Receipt Date: 20080729
  Transmission Date: 20090109
  Serious: Yes (Other)
  Sender: FDA-Public Use
  Company Number: JP-AVENTIS-200812232JP

PATIENT
  Age: 34 Year
  Sex: Female
  Weight: 54.4 kg

DRUGS (8)
  1. ARAVA [Suspect]
     Indication: RHEUMATOID ARTHRITIS
     Route: 048
     Dates: start: 20061016
  2. METHOTREXATE [Suspect]
     Indication: RHEUMATOID ARTHRITIS
     Dosage: DOSE: 8 MG /WEEK
     Route: 048
     Dates: start: 20060515
  3. PREDNISOLONE [Concomitant]
     Indication: RHEUMATOID ARTHRITIS
     Route: 048
     Dates: start: 20060515
  4. PREDNISOLONE [Concomitant]
     Route: 048
     Dates: start: 20060521
  5. PREDNISOLONE [Concomitant]
     Route: 048
  6. PROTECADIN [Concomitant]
     Indication: RHEUMATOID ARTHRITIS
     Route: 048
     Dates: start: 20060515
  7. LOXOT [Concomitant]
     Indication: RHEUMATOID ARTHRITIS
     Dosage: DOSE: 3 TBLS
     Route: 048
     Dates: start: 20060515
  8. FOLIAMIN [Concomitant]
     Route: 048
     Dates: start: 20061215

REACTIONS (2)
  - ALANINE AMINOTRANSFERASE INCREASED [None]
  - ASPARTATE AMINOTRANSFERASE INCREASED [None]
